FAERS Safety Report 4544505-1 (Version None)
Quarter: 2004Q4

REPORT INFORMATION
  Report Type: 
  Country: None (occurrence: None)
  Receive Date: 20041230
  Receipt Date: 20041221
  Transmission Date: 20050328
  Serious: Yes (Hospitalization)
  Sender: FDA-Public Use
  Company Number: 2004-123718-NL

PATIENT
  Age: 11 Year
  Sex: Male

DRUGS (1)
  1. REMERON [Suspect]
     Dosage: DP
     Dates: start: 20030101

REACTIONS (2)
  - APPENDICITIS [None]
  - RENAL FAILURE [None]
